FAERS Safety Report 20828287 (Version 1)
Quarter: 2022Q2

REPORT INFORMATION
  Report Type: Spontaneous
  Country: US (occurrence: US)
  Receive Date: 20220513
  Receipt Date: 20220513
  Transmission Date: 20220720
  Serious: No
  Sender: FDA-Public Use
  Company Number: US-SA-SAC20220509001294

PATIENT
  Sex: Female

DRUGS (21)
  1. DUPIXENT [Suspect]
     Active Substance: DUPILUMAB
     Indication: Product used for unknown indication
     Dosage: 300 MG, QOW
     Route: 058
  2. GAMUNEX [Suspect]
     Active Substance: HUMAN IMMUNOGLOBULIN G
  3. PREDNISONE [Concomitant]
     Active Substance: PREDNISONE
  4. PROMETHAZINE [Concomitant]
     Active Substance: PROMETHAZINE HYDROCHLORIDE
     Dosage: 6.25-15/5 SYRUP
  5. ONDANSETRON HCL [Concomitant]
     Active Substance: ONDANSETRON HYDROCHLORIDE
  6. AIMOVIG [Concomitant]
     Active Substance: ERENUMAB-AOOE
  7. LIDOCAINE [Concomitant]
     Active Substance: LIDOCAINE
  8. EPINEPHRINE [Concomitant]
     Active Substance: EPINEPHRINE
  9. DIPHENHYDRAMINE [Concomitant]
     Active Substance: DIPHENHYDRAMINE
  10. ACETAMINOPHEN [Concomitant]
     Active Substance: ACETAMINOPHEN
  11. SODIUM CHLORIDE [Concomitant]
     Active Substance: SODIUM CHLORIDE
  12. PRILOSEC [Concomitant]
     Active Substance: OMEPRAZOLE MAGNESIUM
  13. FIORICET [Concomitant]
     Active Substance: ACETAMINOPHEN\BUTALBITAL\CAFFEINE
     Dosage: FIORICET 50-300-40 CAPSULE
  14. ENTOCORT EC [Concomitant]
     Active Substance: BUDESONIDE
  15. ALBUTEROL SULFATE [Concomitant]
     Active Substance: ALBUTEROL SULFATE
  16. ANORO ELLIPTA [Concomitant]
     Active Substance: UMECLIDINIUM BROMIDE\VILANTEROL TRIFENATATE
     Dosage: ANORO ELLIPTA 62.5-25MCG BLST W/DEV
  17. SINGULAIR [Interacting]
     Active Substance: MONTELUKAST SODIUM
  18. VITAMIN D2 [Concomitant]
     Active Substance: ERGOCALCIFEROL
  19. BACTRIM DS [Concomitant]
     Active Substance: SULFAMETHOXAZOLE\TRIMETHOPRIM
     Dosage: BACTRIM DS 800-160 MG TABLET
  20. PROMETHAZINE HYDROCHLORIDE [Concomitant]
     Active Substance: PROMETHAZINE HYDROCHLORIDE
  21. MICARDIS [Concomitant]
     Active Substance: TELMISARTAN

REACTIONS (3)
  - Sinusitis [Unknown]
  - Pyrexia [Unknown]
  - Headache [Unknown]
